FAERS Safety Report 5199330-8 (Version None)
Quarter: 2006Q4

REPORT INFORMATION
  Report Type: 
  Country: None (occurrence: None)
  Receive Date: 20060919
  Receipt Date: 20060522
  Transmission Date: 20070319
  Serious: Yes (Other)
  Sender: FDA-Public Use
  Company Number: BDI-007786

PATIENT
  Age: 52 Year
  Sex: Female

DRUGS (1)
  1. MULTIHANCE [Suspect]
     Indication: NUCLEAR MAGNETIC RESONANCE IMAGING BRAIN
     Dosage: 20 ML ONCE IV
     Route: 042
     Dates: start: 20051208, end: 20051208

REACTIONS (1)
  - HYPERSENSITIVITY [None]
